FAERS Safety Report 7200823-X (Version None)
Quarter: 2010Q4

REPORT INFORMATION
  Report Type: 
  Country: None (occurrence: None)
  Receive Date: 20101228
  Receipt Date: 20101224
  Transmission Date: 20110411
  Serious: Yes (Other)
  Sender: FDA-Public Use
  Company Number: JP-PFIZER INC-2010179115

PATIENT
  Age: 82 Year
  Sex: Female

DRUGS (2)
  1. DIFLUCAN [Suspect]
     Dosage: 100 MG/DAY
     Dates: start: 20101101
  2. WARFARIN [Concomitant]
     Dosage: UNK

REACTIONS (1)
  - RENAL IMPAIRMENT [None]
